FAERS Safety Report 10637354 (Version 1)
Quarter: 2014Q4

REPORT INFORMATION
  Report Type: Spontaneous
  Country: US (occurrence: None)
  Receive Date: 20141203
  Receipt Date: 20141203
  Transmission Date: 20150529
  Serious: Yes (Hospitalization)
  Sender: FDA-Public Use
  Company Number: None

PATIENT
  Age: 80 Year
  Sex: Male
  Weight: 86.2 kg

DRUGS (2)
  1. BEVACIZUMAB [Suspect]
     Active Substance: BEVACIZUMAB
  2. CAPECITABINE. [Suspect]
     Active Substance: CAPECITABINE

REACTIONS (6)
  - Atrioventricular block first degree [None]
  - Confusional state [None]
  - Blood pressure increased [None]
  - Transient ischaemic attack [None]
  - Hypoaesthesia oral [None]
  - Vertigo [None]

NARRATIVE: CASE EVENT DATE: 20141118
